FAERS Safety Report 7597074-6 (Version None)
Quarter: 2011Q3

REPORT INFORMATION
  Report Type: 
  Country: None (occurrence: None)
  Receive Date: 20110708
  Receipt Date: 20110627
  Transmission Date: 20111222
  Serious: Yes (Hospitalization)
  Sender: FDA-Public Use
  Company Number: KR-SANOFI-AVENTIS-2011SA041563

PATIENT
  Age: 42 Year
  Sex: Male

DRUGS (20)
  1. ASPIRIN [Concomitant]
     Dates: start: 20050225
  2. CARVEDILOL [Concomitant]
     Indication: HYPERTENSION
  3. CLOPIDOGREL BISULFATE [Suspect]
     Route: 065
  4. CILOSTAZOL [Concomitant]
  5. WARFARIN SODIUM [Concomitant]
     Dates: start: 20050225, end: 20050808
  6. CLOPIDOGREL BISULFATE [Suspect]
     Route: 065
     Dates: start: 20050221
  7. CLOPIDOGREL BISULFATE [Suspect]
     Route: 065
  8. ASPIRIN [Concomitant]
     Indication: ANTIPLATELET THERAPY
     Dates: start: 20050221, end: 20050221
  9. ASPIRIN [Concomitant]
     Dates: start: 20050221
  10. GLIMEPIRIDE [Concomitant]
     Indication: DIABETES MELLITUS
     Route: 048
  11. CLOPIDOGREL BISULFATE [Suspect]
     Route: 065
  12. CLOPIDOGREL BISULFATE [Suspect]
     Route: 065
  13. CLOPIDOGREL BISULFATE [Suspect]
     Route: 065
     Dates: start: 20050225
  14. CILOSTAZOL [Concomitant]
     Indication: ANTIPLATELET THERAPY
     Dates: start: 20050225, end: 20050808
  15. CILOSTAZOL [Concomitant]
  16. CLOPIDOGREL BISULFATE [Suspect]
     Indication: ANTIPLATELET THERAPY
     Route: 065
     Dates: start: 20050221, end: 20050221
  17. ASPIRIN [Concomitant]
  18. ASPIRIN [Concomitant]
  19. ASPIRIN [Concomitant]
  20. RAMIPRIL [Concomitant]
     Indication: HYPERTENSION

REACTIONS (4)
  - CHEST PAIN [None]
  - DRUG RESISTANCE [None]
  - THROMBOSIS [None]
  - ACUTE MYOCARDIAL INFARCTION [None]
